FAERS Safety Report 23743048 (Version 5)
Quarter: 2025Q4

REPORT INFORMATION
  Report Type: Spontaneous
  Country: US (occurrence: US)
  Receive Date: 20240415
  Receipt Date: 20251105
  Transmission Date: 20260117
  Serious: No
  Sender: PFIZER
  Company Number: US-PFIZER INC-PV202400048879

PATIENT
  Age: 65 Year
  Sex: Female

DRUGS (1)
  1. IBRANCE [Suspect]
     Active Substance: PALBOCICLIB
     Indication: Breast cancer female
     Dosage: 125 MG, CYCLIC (TAKE 1 TABLET BY MOUTH ONCE DAILY FOR 21 DAYS. TAKE 7 DAYS OFF THEN REPEAT)
     Route: 048

REACTIONS (2)
  - Nausea [Unknown]
  - Hypoacusis [Unknown]
